FAERS Safety Report 7828625-1 (Version None)
Quarter: 2011Q4

REPORT INFORMATION
  Report Type: 
  Country: None (occurrence: None)
  Receive Date: 20111020
  Receipt Date: 20111011
  Transmission Date: 20120403
  Serious: Yes (Other)
  Sender: FDA-Public Use
  Company Number: PHHY2011JP89950

PATIENT
  Age: 67 Year
  Sex: Male
  Weight: 50 kg

DRUGS (12)
  1. WARFARIN SODIUM [Interacting]
     Indication: DEEP VEIN THROMBOSIS
     Dosage: 2 MG, QD
  2. URSODIOL [Concomitant]
     Dosage: 600 MG, QD
  3. HEPARIN [Concomitant]
     Indication: ANTICOAGULANT THERAPY
     Dosage: 4000 IU/L, QD
  4. TACROLIMUS [Concomitant]
     Indication: PROPHYLAXIS
     Dosage: 0.06 MG/KG, QD
  5. SULFAMETHOXAZOLE AND TRIMETHOPRIM [Concomitant]
     Indication: PNEUMONITIS
  6. ACYCLOVIR [Concomitant]
     Dosage: 1000 MG, QD
  7. FLUCONAZOLE [Interacting]
     Dosage: 200 MG, QD
  8. MELPHALAN HYDROCHLORIDE [Concomitant]
     Dosage: 40 MG/M2, QD
  9. CIPROFLOXACIN HYDROCHLORIDE [Concomitant]
     Dosage: 300 MG, QD
  10. VORICONAZOLE [Suspect]
     Indication: PROPHYLAXIS
     Dosage: 200 MG, QD
  11. FLUDARABINE PHOSPHATE [Interacting]
     Dosage: 25 MG/M2, QD
  12. LANSOPRAZOLE [Concomitant]
     Dosage: 30 MG, QD

REACTIONS (3)
  - INTERNATIONAL NORMALISED RATIO INCREASED [None]
  - DRUG INTERACTION [None]
  - ANTICOAGULATION DRUG LEVEL ABOVE THERAPEUTIC [None]
